FAERS Safety Report 23472133 (Version 2)
Quarter: 2024Q1

REPORT INFORMATION
  Report Type: Spontaneous
  Country: AU (occurrence: AU)
  Receive Date: 20240202
  Receipt Date: 20240205
  Transmission Date: 20240410
  Serious: Yes (Other)
  Sender: FDA-Public Use
  Company Number: AU-Korea IPSEN-2024-01249

PATIENT
  Age: 55 Year
  Sex: Male
  Weight: 90.2 kg

DRUGS (7)
  1. DYSPORT [Suspect]
     Active Substance: ABOBOTULINUMTOXINA
     Indication: Muscle spasticity
     Dosage: UPPER LIMB AND LOWER LIMB. EVERY 3-4 MONTH
     Route: 030
     Dates: start: 20230118, end: 20230118
  2. DYSPORT [Suspect]
     Active Substance: ABOBOTULINUMTOXINA
     Dosage: LOWER LIMB (GASTRO, SOLEUS, TIBIALIS POSTERIOR)
     Route: 065
     Dates: start: 20230503, end: 20230503
  3. DYSPORT [Suspect]
     Active Substance: ABOBOTULINUMTOXINA
     Dosage: LOWER LIMB (GASTRO, SOLEUS, TIBIALIS POSTERIOR)
     Route: 065
     Dates: start: 20230906, end: 20230906
  4. ASPIRIN [Concomitant]
     Active Substance: ASPIRIN
     Indication: Cerebrovascular accident
     Dosage: 100MG DAILY
  5. AMLODIPINE [Concomitant]
     Active Substance: AMLODIPINE BESYLATE
     Indication: Hypertension
     Dosage: 10MG NOCTE
  6. ATORVASTATIN [Concomitant]
     Active Substance: ATORVASTATIN
     Indication: Dyslipidaemia
     Dosage: 80MG DAILY
  7. EZETIMIBE [Concomitant]
     Active Substance: EZETIMIBE
     Indication: Dyslipidaemia
     Dosage: 10 MG DAILY

REACTIONS (8)
  - Dizziness [Recovering/Resolving]
  - Limb discomfort [Recovered/Resolved]
  - Feeling drunk [Recovering/Resolving]
  - Dyspnoea [Recovered/Resolved]
  - Dysphonia [Recovered/Resolved]
  - Dysphagia [Unknown]
  - Intentional product misuse [Unknown]
  - Intentional overdose [Unknown]

NARRATIVE: CASE EVENT DATE: 20230101
